FAERS Safety Report 8366543-3 (Version None)
Quarter: 2012Q2

REPORT INFORMATION
  Report Type: 
  Country: None (occurrence: None)
  Receive Date: 20120517
  Receipt Date: 20120510
  Transmission Date: 20120825
  Serious: Yes (Other)
  Sender: FDA-Public Use
  Company Number: BR-US-EMD SERONO, INC.-7109677

PATIENT
  Sex: Female

DRUGS (1)
  1. REBIF [Suspect]
     Indication: RELAPSING-REMITTING MULTIPLE SCLEROSIS
     Dates: start: 20100618, end: 20120410

REACTIONS (15)
  - GAIT DISTURBANCE [None]
  - DYSSTASIA [None]
  - TREMOR [None]
  - MUSCULOSKELETAL STIFFNESS [None]
  - INJECTION SITE INFECTION [None]
  - HEADACHE [None]
  - PALATAL DISORDER [None]
  - DEPRESSED MOOD [None]
  - TREATMENT NONCOMPLIANCE [None]
  - SUICIDAL IDEATION [None]
  - ASTHENIA [None]
  - DIZZINESS [None]
  - NAUSEA [None]
  - MALAISE [None]
  - URINARY TRACT INFECTION [None]
